FAERS Safety Report 11708882 (Version 1)
Quarter: 2015Q4

REPORT INFORMATION
  Report Type: Spontaneous
  Country: US (occurrence: US)
  Receive Date: 20151104
  Receipt Date: 20151104
  Transmission Date: 20160304
  Serious: No
  Sender: FDA-Public Use
  Company Number: US-ELI_LILLY_AND_COMPANY-US201102004299

PATIENT
  Age: 61 Year
  Sex: Female

DRUGS (12)
  1. IBUPROFEN. [Concomitant]
     Active Substance: IBUPROFEN
  2. FORTEO [Suspect]
     Active Substance: TERIPARATIDE
     Indication: OSTEOPOROSIS
     Dosage: 20 UG, DAILY (1/D)
     Dates: start: 20110131
  3. PROTONIX [Concomitant]
     Active Substance: PANTOPRAZOLE SODIUM
  4. LYRICA [Concomitant]
     Active Substance: PREGABALIN
  5. HYDROCODONE [Concomitant]
     Active Substance: HYDROCODONE
  6. TRAMADOL. [Concomitant]
     Active Substance: TRAMADOL
  7. VASOTEC [Concomitant]
     Active Substance: ENALAPRIL MALEATE
  8. VITAMIN D [Concomitant]
     Active Substance: CHOLECALCIFEROL
  9. AMBIEN CR [Concomitant]
     Active Substance: ZOLPIDEM TARTRATE
  10. CALCIUM [Concomitant]
     Active Substance: CALCIUM
  11. FORTEO [Suspect]
     Active Substance: TERIPARATIDE
     Dosage: 20 UG, QD
  12. PREDNISONE. [Concomitant]
     Active Substance: PREDNISONE

REACTIONS (4)
  - Back pain [Unknown]
  - Stress fracture [Not Recovered/Not Resolved]
  - Pain in extremity [Unknown]
  - Musculoskeletal disorder [Unknown]

NARRATIVE: CASE EVENT DATE: 201102
